FAERS Safety Report 23986720 (Version 1)
Quarter: 2024Q2

REPORT INFORMATION
  Report Type: Spontaneous
  Country: US (occurrence: None)
  Receive Date: 20240618
  Receipt Date: 20240618
  Transmission Date: 20240716
  Serious: Yes (Death)
  Sender: FDA-Public Use
  Company Number: None

PATIENT
  Age: 62 Year
  Sex: Female

DRUGS (4)
  1. MYCOPHENOLIC ACID [Suspect]
     Active Substance: MYCOPHENOLIC ACID
     Indication: Postoperative care
     Dosage: 500 MG BID ORAL
     Route: 048
  2. MYCOPHENOLIC ACID [Suspect]
     Active Substance: MYCOPHENOLIC ACID
     Indication: Transplant
  3. TACROLIMUS [Suspect]
     Active Substance: TACROLIMUS
     Indication: Postoperative care
     Dosage: 0.5 MG BID ORAL
  4. TACROLIMUS [Suspect]
     Active Substance: TACROLIMUS
     Indication: Transplant

REACTIONS (3)
  - Transplantation complication [None]
  - Renal transplant [None]
  - Death [None]

NARRATIVE: CASE EVENT DATE: 20240612
